APPROVED DRUG PRODUCT: DIFLUNISAL
Active Ingredient: DIFLUNISAL
Strength: 250MG
Dosage Form/Route: TABLET;ORAL
Application: A073679 | Product #001
Applicant: TEVA PHARMACEUTICALS USA INC
Approved: Jul 31, 1992 | RLD: No | RS: No | Type: DISCN